FAERS Safety Report 24705317 (Version 1)
Quarter: 2024Q4

REPORT INFORMATION
  Report Type: Spontaneous
  Country: US (occurrence: None)
  Receive Date: 20241205
  Receipt Date: 20241205
  Transmission Date: 20250114
  Serious: No
  Sender: Public
  Company Number: None

PATIENT
  Age: 48 Year
  Sex: Male
  Weight: 68 kg

DRUGS (1)
  1. ATEZOLIZUMAB [Suspect]
     Active Substance: ATEZOLIZUMAB
     Indication: Hepatocellular carcinoma
     Dosage: OTHER FREQUENCY : ONCE;?
     Route: 042
     Dates: start: 20200717, end: 20200717

REACTIONS (3)
  - Dermatomyositis [None]
  - Dysphagia [None]
  - Rash [None]

NARRATIVE: CASE EVENT DATE: 20200717
